FAERS Safety Report 8069600-4 (Version None)
Quarter: 2012Q1

REPORT INFORMATION
  Report Type: 
  Country: None (occurrence: None)
  Receive Date: 20120125
  Receipt Date: 20120113
  Transmission Date: 20120608
  Serious: Yes (Other)
  Sender: FDA-Public Use
  Company Number: CA-ELI_LILLY_AND_COMPANY-CA201201004468

PATIENT
  Age: 64 Year
  Sex: Female

DRUGS (9)
  1. SINGULAIR [Concomitant]
  2. CALCIUM [Concomitant]
  3. CYCLOBENZAPRINE [Concomitant]
  4. VITAMIN D [Concomitant]
  5. ZYLOPRIM [Concomitant]
  6. ASPIRIN [Concomitant]
     Dosage: 81 MG, UNK
  7. NORTRIPTYLINE HCL [Concomitant]
  8. FORTEO [Suspect]
     Indication: OSTEOPOROSIS
     Dosage: 20 UG, QD
     Route: 058
     Dates: start: 20091130, end: 20111201
  9. MEDROL [Concomitant]

REACTIONS (2)
  - STRESS FRACTURE [None]
  - ARTHRITIS [None]
